FAERS Safety Report 15761716 (Version 1)
Quarter: 2018Q4

REPORT INFORMATION
  Report Type: Report from Study
  Country: None (occurrence: BR)
  Receive Date: 20181226
  Receipt Date: 20181226
  Transmission Date: 20190205
  Serious: Yes (Other)
  Sender: FDA-Public Use
  Company Number: BR-ABBVIE-18K-020-2601195-00

PATIENT
  Sex: Female

DRUGS (1)
  1. HUMIRA [Suspect]
     Active Substance: ADALIMUMAB
     Indication: ANKYLOSING SPONDYLITIS
     Route: 058

REACTIONS (7)
  - Malaise [Unknown]
  - Depression [Unknown]
  - Post-traumatic stress disorder [Unknown]
  - Crying [Unknown]
  - Drug effect incomplete [Unknown]
  - Listless [Unknown]
  - Drug abuser [Unknown]
